FAERS Safety Report 21676319 (Version 1)
Quarter: 2022Q4

REPORT INFORMATION
  Report Type: Spontaneous
  Country: CN (occurrence: CN)
  Receive Date: 20221202
  Receipt Date: 20221202
  Transmission Date: 20230112
  Serious: Yes (Hospitalization, Other)
  Sender: FDA-Public Use
  Company Number: CN-MACLEODS PHARMACEUTICALS US LTD-MAC2022038462

PATIENT

DRUGS (13)
  1. TRAMADOL [Suspect]
     Active Substance: TRAMADOL
     Indication: Analgesic therapy
     Dosage: 100 MILLIGRAM
     Route: 065
  2. ROCURONIUM [Suspect]
     Active Substance: ROCURONIUM BROMIDE
     Indication: Endotracheal intubation
     Dosage: 50 MILLIGRAM, SINGLE
     Route: 042
  3. LORNOXICAM [Suspect]
     Active Substance: LORNOXICAM
     Indication: Antiemetic supportive care
     Dosage: 16 MILLIGRAM
     Route: 065
  4. REMIFENTANIL [Suspect]
     Active Substance: REMIFENTANIL
     Indication: Induction and maintenance of anaesthesia
     Dosage: 2 MICROGRAM/KILOGRAM (EVERY 1 HR)
     Route: 042
  5. REMIFENTANIL [Suspect]
     Active Substance: REMIFENTANIL
     Dosage: 4 MICROGRAM/KILOGRAM (1 HR)
     Route: 042
  6. ROPIVACAINE [Suspect]
     Active Substance: ROPIVACAINE
     Indication: Infiltration anaesthesia
     Dosage: UNK
     Route: 065
  7. SUFENTANIL [Suspect]
     Active Substance: SUFENTANIL
     Indication: Induction of anaesthesia
     Dosage: 30 MICROGRAM, SINGLE (LASTING APPROXIMATELY 10 S)
     Route: 042
  8. SEVOFLURANE [Suspect]
     Active Substance: SEVOFLURANE
     Indication: Maintenance of anaesthesia
     Dosage: UNK (IN 60% OXYGEN WITH AIR)
     Route: 065
  9. PROPOFOL [Suspect]
     Active Substance: PROPOFOL
     Indication: Induction and maintenance of anaesthesia
     Dosage: 4 MILLIGRAM/KILOGRAM ( EVERY 1 HR)
     Route: 042
  10. PROPOFOL [Suspect]
     Active Substance: PROPOFOL
     Dosage: 70 MILLIGRAM, SINGLE (AT A RATE OF 20 MG/10 S), EVERY
     Route: 042
  11. PROPOFOL [Suspect]
     Active Substance: PROPOFOL
     Dosage: 2 MILLIGRAM/KILOGRAM (1 HR)
     Route: 042
  12. GRANISETRON [Concomitant]
     Active Substance: GRANISETRON
     Indication: Antiemetic supportive care
     Dosage: 3 MILLIGRAM, SINGLE
     Route: 042
  13. OXYGEN [Concomitant]
     Active Substance: OXYGEN
     Indication: Product used for unknown indication
     Dosage: UNK
     Route: 065

REACTIONS (3)
  - Delayed recovery from anaesthesia [Recovered/Resolved]
  - Loss of consciousness [Recovered/Resolved]
  - Overdose [Recovered/Resolved]
